FAERS Safety Report 8374321 (Version 2)
Quarter: 2014Q2

REPORT INFORMATION
  Report Type: Spontaneous
  Country: US (occurrence: US)
  Receive Date: 20120131
  Receipt Date: 20140625
  Transmission Date: 20141212
  Serious: Yes (Other)
  Sender: FDA-Public Use
  Company Number: US-US-EMD SERONO, INC.-7108598

PATIENT
  Sex: Female
  Weight: 82 kg

DRUGS (4)
  1. REBIF [Suspect]
     Indication: PRODUCT USED FOR UNKNOWN INDICATION
     Route: 058
     Dates: start: 20090303
  2. ADDERALL [Concomitant]
  3. EFFEXOR [Concomitant]
  4. BIRTH CONTROL [Concomitant]

REACTIONS (1)
  - Malignant melanoma [Not Recovered/Not Resolved]
